FAERS Safety Report 19973454 (Version 1)
Quarter: 2021Q4

REPORT INFORMATION
  Report Type: Spontaneous
  Country: US (occurrence: US)
  Receive Date: 20211020
  Receipt Date: 20211020
  Transmission Date: 20220303
  Serious: Yes (Other)
  Sender: FDA-Public Use
  Company Number: None

PATIENT
  Age: 23 Year
  Sex: Male
  Weight: 101.1 kg

DRUGS (2)
  1. HEMLIBRA [Suspect]
     Active Substance: EMICIZUMAB-KXWH
     Indication: Factor VIII deficiency
     Dosage: ?          OTHER FREQUENCY:EVERY 2 WEEKS;
     Route: 058
     Dates: start: 20210714
  2. Amlodipine 5mg PO daily [Concomitant]
     Dates: start: 20200115

REACTIONS (2)
  - Injection site erythema [None]
  - Injection site swelling [None]

NARRATIVE: CASE EVENT DATE: 20210909
